FAERS Safety Report 10597351 (Version 3)
Quarter: 2015Q1

REPORT INFORMATION
  Report Type: Spontaneous
  Country: DE (occurrence: DE)
  Receive Date: 20141121
  Receipt Date: 20150113
  Transmission Date: 20150720
  Serious: Yes (Hospitalization, Other)
  Sender: FDA-Public Use
  Company Number: DE-AMGEN-DEUSP2014089677

PATIENT
  Age: 72 Year
  Sex: Female

DRUGS (12)
  1. FOLIC ACID. [Concomitant]
     Active Substance: FOLIC ACID
     Dosage: 5 MG, QD (IN EVENING)
  2. METHOTREXATE [Suspect]
     Active Substance: METHOTREXATE
     Indication: RHEUMATOID ARTHRITIS
     Dosage: 7.5 MG, QWK
     Route: 048
     Dates: start: 20040603, end: 20140904
  3. DEXAMETHASONE. [Suspect]
     Active Substance: DEXAMETHASONE
     Indication: RHEUMATOID ARTHRITIS
     Dosage: 1.5 MG, QD
     Route: 048
     Dates: start: 201206, end: 20141117
  4. FERRO SANOL [Concomitant]
     Active Substance: FERROUS SULFATE\GLYCINE
     Dosage: UNK UNK, QD (IN MORNING)
  5. METEX                              /00082702/ [Concomitant]
     Dosage: 7.5 MG, QD (IN EVENING)
  6. PANTOZOL [Concomitant]
     Active Substance: PANTOPRAZOLE SODIUM
     Dosage: 40 MG, BID
  7. DEKRISTOL [Concomitant]
     Active Substance: CHOLECALCIFEROL
     Dosage: 2000 IU, Q2WK
  8. ORENCIA [Suspect]
     Active Substance: ABATACEPT
     Indication: RHEUMATOID ARTHRITIS
     Dosage: 125 MG, UNK
     Route: 058
     Dates: start: 201202, end: 20140904
  9. NOVALGIN [Concomitant]
     Active Substance: METAMIZOLE SODIUM
     Dosage: 30 DROPS, TID
  10. CALCIUM [Concomitant]
     Active Substance: CALCIUM
     Dosage: UNK UNK, QD (IN MIDDAY)
  11. RAMIPRIL. [Concomitant]
     Active Substance: RAMIPRIL
     Dosage: 5 MG, BID
  12. PROLIA [Suspect]
     Active Substance: DENOSUMAB
     Indication: OSTEOPOROSIS
     Dosage: 60 MG, Q6MO
     Route: 058
     Dates: start: 201305, end: 20140618

REACTIONS (7)
  - Cardiomegaly [Unknown]
  - Escherichia infection [Unknown]
  - Chronic obstructive pulmonary disease [Unknown]
  - Haematoma [Unknown]
  - Abscess limb [Recovering/Resolving]
  - Thrombophlebitis [Recovering/Resolving]
  - Aortic arteriosclerosis [Unknown]

NARRATIVE: CASE EVENT DATE: 20140807
